FAERS Safety Report 7982719-9 (Version None)
Quarter: 2011Q4

REPORT INFORMATION
  Report Type: 
  Country: None (occurrence: None)
  Receive Date: 20111215
  Receipt Date: 20111213
  Transmission Date: 20120403
  Serious: Yes (Disabling, Other)
  Sender: FDA-Public Use
  Company Number: US-TEVA-313467USA

PATIENT
  Sex: Female

DRUGS (2)
  1. ALENDRONATE SODIUM [Suspect]
     Indication: OSTEOPOROSIS
     Dates: start: 19991101, end: 20071101
  2. ALENDRONIC ACID [Suspect]
     Indication: OSTEOPOROSIS

REACTIONS (5)
  - TOXICITY TO VARIOUS AGENTS [None]
  - LOW TURNOVER OSTEOPATHY [None]
  - BONE DISORDER [None]
  - FEMUR FRACTURE [None]
  - STRESS FRACTURE [None]
